FAERS Safety Report 9792517 (Version 3)
Quarter: 2014Q2

REPORT INFORMATION
  Report Type: Spontaneous
  Country: US (occurrence: US)
  Receive Date: 20140102
  Receipt Date: 20140509
  Transmission Date: 20141212
  Serious: Yes (Hospitalization, Other)
  Sender: FDA-Public Use
  Company Number: US-009507513-1312USA011695

PATIENT
  Sex: Female
  Weight: 83.9 kg

DRUGS (14)
  1. FOSAMAX [Suspect]
     Indication: OSTEOPOROSIS
     Dosage: 5 MG, UNK
     Route: 048
     Dates: start: 19990618
  2. FOSAMAX [Suspect]
     Indication: OSTEOPENIA
     Dosage: 70 MG, QW
     Route: 048
     Dates: end: 201110
  3. ALENDRONATE SODIUM [Suspect]
     Indication: OSTEOPOROSIS
     Dosage: 70 MG, QW
     Route: 048
     Dates: end: 201210
  4. ALENDRONATE SODIUM [Suspect]
     Indication: OSTEOPENIA
  5. CALCIUM (UNSPECIFIED) [Concomitant]
     Indication: OSTEOPENIA
  6. VIOXX [Concomitant]
     Indication: OSTEOARTHRITIS
     Dosage: 25 MG, QD
     Route: 048
     Dates: start: 19990608
  7. ESTRADERM [Concomitant]
     Indication: MENOPAUSE
  8. ULTRAM [Concomitant]
     Indication: OSTEOARTHRITIS
     Dosage: 1-2 DF Q 4-6 HR
  9. MOBIC [Concomitant]
     Indication: OSTEOARTHRITIS
     Dosage: 7.5 MG, QAM
  10. ORUVAIL [Concomitant]
     Indication: OSTEOARTHRITIS
     Dosage: 200 MG, QD
     Route: 048
  11. LOZOL [Concomitant]
     Indication: OEDEMA PERIPHERAL
     Dosage: UNK
     Dates: start: 19990608
  12. ESTROGENS (UNSPECIFIED) [Concomitant]
  13. HYDROCHLOROTHIAZIDE (+) LISINOPRIL [Concomitant]
     Indication: ESSENTIAL HYPERTENSION
     Dosage: 10 MG/12.5 MG, QD
     Dates: end: 20041019
  14. LISINOPRIL [Concomitant]
     Indication: ESSENTIAL HYPERTENSION
     Dosage: 10 MG, QAM
     Dates: start: 20041019

REACTIONS (41)
  - Femur fracture [Unknown]
  - Intramedullary rod insertion [Unknown]
  - Device breakage [Unknown]
  - Intramedullary rod insertion [Unknown]
  - Cardiac arrest [Recovered/Resolved]
  - Cardiac pacemaker insertion [Unknown]
  - Cardiac pacemaker insertion [Unknown]
  - Peroneal nerve palsy [Unknown]
  - Removal of internal fixation [Unknown]
  - Fracture nonunion [Unknown]
  - Medical device removal [Unknown]
  - Joint dislocation reduction [Unknown]
  - Hip arthroplasty [Unknown]
  - Colectomy [Unknown]
  - Knee arthroplasty [Unknown]
  - Knee arthroplasty [Unknown]
  - Low turnover osteopathy [Unknown]
  - Depression [Not Recovered/Not Resolved]
  - Anxiety [Not Recovered/Not Resolved]
  - Fracture nonunion [Unknown]
  - Haemorrhagic anaemia [Recovering/Resolving]
  - Atrophic vulvovaginitis [Unknown]
  - Anaemia postoperative [Recovering/Resolving]
  - Device failure [Unknown]
  - Bundle branch block left [Unknown]
  - Hypotension [Unknown]
  - Hypotension [Unknown]
  - Type 2 diabetes mellitus [Unknown]
  - Coronary artery disease [Unknown]
  - Nail disorder [Unknown]
  - Diverticulitis [Unknown]
  - Abdominal hernia [Unknown]
  - Back disorder [Unknown]
  - Contusion [Unknown]
  - Fall [Unknown]
  - Stress [Not Recovered/Not Resolved]
  - Foot fracture [Unknown]
  - Adverse event [Unknown]
  - Device failure [Unknown]
  - Device dislocation [Unknown]
  - Osteoarthritis [Unknown]
